FAERS Safety Report 21240904 (Version 1)
Quarter: 2022Q3

REPORT INFORMATION
  Report Type: Spontaneous
  Country: US (occurrence: None)
  Receive Date: 20220822
  Receipt Date: 20220822
  Transmission Date: 20221027
  Serious: Yes (Other)
  Sender: FDA-Public Use
  Company Number: None

PATIENT
  Age: 45 Year
  Sex: Female
  Weight: 72.45 kg

DRUGS (3)
  1. PAXLOVID [Suspect]
     Active Substance: NIRMATRELVIR\RITONAVIR
     Indication: COVID-19
     Dosage: FREQUENCY : TWICE A DAY;?
     Route: 048
     Dates: start: 20220811, end: 20220816
  2. MOTRIN [Concomitant]
     Active Substance: IBUPROFEN
     Dates: start: 20220811
  3. Delsym cough syrup [Concomitant]
     Dates: start: 20220811, end: 20220814

REACTIONS (2)
  - Oral pruritus [None]
  - Swelling face [None]

NARRATIVE: CASE EVENT DATE: 20220811
